FAERS Safety Report 24458992 (Version 1)
Quarter: 2024Q4

REPORT INFORMATION
  Report Type: Spontaneous
  Country: US (occurrence: None)
  Receive Date: 20241017
  Receipt Date: 20241017
  Transmission Date: 20250114
  Serious: Yes (Hospitalization)
  Sender: Public
  Company Number: None

PATIENT
  Age: 88 Year
  Sex: Male

DRUGS (1)
  1. LACOSAMIDE [Suspect]
     Active Substance: LACOSAMIDE
     Indication: Seizure
     Dosage: FREQUENCY : TWICE A DAY;?
     Route: 048

REACTIONS (6)
  - Confusional state [None]
  - Disorientation [None]
  - Hallucination [None]
  - Metabolic encephalopathy [None]
  - Sleep deficit [None]
  - Therapy cessation [None]

NARRATIVE: CASE EVENT DATE: 20231111
